FAERS Safety Report 9934517 (Version 1)
Quarter: 2014Q1

REPORT INFORMATION
  Report Type: Spontaneous
  Country: US (occurrence: US)
  Receive Date: 20140228
  Receipt Date: 20140228
  Transmission Date: 20141002
  Serious: No
  Sender: FDA-Public Use
  Company Number: US-ASTRAZENECA-2013SE85664

PATIENT
  Age: 62 Year
  Sex: Male
  Weight: 81.6 kg

DRUGS (5)
  1. METOPROLOL SUCCINATE ER [Suspect]
     Indication: HYPERTENSION
     Route: 048
     Dates: start: 1998
  2. METOPROLOL SUCCINATE ER [Suspect]
     Indication: HYPERTENSION
     Route: 048
  3. METOPROLOL SUCCINATE ER [Suspect]
     Indication: HYPERTENSION
     Dosage: MYLAN
     Route: 048
  4. NIACIN [Suspect]
     Route: 065
  5. LOVASTATIN [Concomitant]
     Indication: HYPERCHOLESTEROLAEMIA
     Dosage: 20 MG. DAILY
     Route: 048

REACTIONS (2)
  - Urticaria [Not Recovered/Not Resolved]
  - Flushing [Not Recovered/Not Resolved]
